FAERS Safety Report 13964268 (Version 1)
Quarter: 2017Q3

REPORT INFORMATION
  Report Type: Spontaneous
  Country: US (occurrence: US)
  Receive Date: 20170913
  Receipt Date: 20170913
  Transmission Date: 20171128
  Serious: No
  Sender: FDA-Public Use
  Company Number: US-BEH-2017083506

PATIENT
  Age: 44 Year
  Sex: Female

DRUGS (1)
  1. HIZENTRA [Suspect]
     Active Substance: HUMAN IMMUNOGLOBULIN G
     Indication: HYPOGAMMAGLOBULINAEMIA
     Dosage: 15 G, UNK
     Route: 065
     Dates: start: 201708

REACTIONS (3)
  - Headache [Recovering/Resolving]
  - Infusion site bruising [Recovering/Resolving]
  - Abdominal discomfort [Recovering/Resolving]
